FAERS Safety Report 5324143-3 (Version None)
Quarter: 2007Q2

REPORT INFORMATION
  Report Type: 
  Country: None (occurrence: None)
  Receive Date: 20070514
  Receipt Date: 20070123
  Transmission Date: 20071010
  Serious: No
  Sender: FDA-Public Use
  Company Number: A0636726A

PATIENT
  Age: 71 Year
  Sex: Male

DRUGS (2)
  1. NABUMETONE [Suspect]
     Indication: SPONDYLITIS
     Route: 065
     Dates: start: 20060101
  2. REMICADE [Concomitant]

REACTIONS (2)
  - DISCOMFORT [None]
  - PEPTIC ULCER [None]
